FAERS Safety Report 7641059-8 (Version None)
Quarter: 2011Q3

REPORT INFORMATION
  Report Type: 
  Country: None (occurrence: None)
  Receive Date: 20110728
  Receipt Date: 20110718
  Transmission Date: 20111222
  Serious: Yes (Other)
  Sender: FDA-Public Use
  Company Number: DE-ALLERGAN-1109802US

PATIENT
  Age: 72 Year
  Sex: Male

DRUGS (6)
  1. BISOPROLOL FUMARATE [Concomitant]
  2. LUMIGAN [Suspect]
     Indication: PRODUCT USED FOR UNKNOWN INDICATION
     Dosage: UNK
     Dates: start: 20070101
  3. CITALOPRAM HYDROBROMIDE [Concomitant]
  4. ALLOPURINOL [Concomitant]
  5. MARCUMAR [Concomitant]
  6. TAMSULOSIN HCL [Concomitant]

REACTIONS (1)
  - ATRIAL FIBRILLATION [None]
